FAERS Safety Report 26132874 (Version 1)
Quarter: 2025Q4

REPORT INFORMATION
  Report Type: Spontaneous
  Country: TR (occurrence: None)
  Receive Date: 20251209
  Receipt Date: 20251209
  Transmission Date: 20260117
  Serious: Yes (Life-Threatening, Other)
  Sender: Alvotech
  Company Number: TR-ALVOTECHPMS-2025-ALVOTECHPMS-005921

PATIENT
  Age: 47 Year
  Sex: Female

DRUGS (2)
  1. SIMLANDI [Suspect]
     Active Substance: ADALIMUMAB-RYVK
     Indication: Rheumatoid arthritis
     Dosage: 40 MG/2 WEEKS
     Route: 058
     Dates: start: 20251009, end: 20251118
  2. SIMLANDI [Suspect]
     Active Substance: ADALIMUMAB-RYVK
     Indication: Sjogren^s syndrome
     Dosage: 40 MG/2 WEEKS
     Route: 058
     Dates: start: 20251009, end: 20251118

REACTIONS (2)
  - Dysphagia [Recovered/Resolved]
  - Pyrexia [Recovered/Resolved]

NARRATIVE: CASE EVENT DATE: 20251009
